FAERS Safety Report 10802459 (Version 2)
Quarter: 2016Q4

REPORT INFORMATION
  Report Type: Spontaneous
  Country: TW (occurrence: TW)
  Receive Date: 20150217
  Receipt Date: 20161011
  Transmission Date: 20170206
  Serious: Yes (Death, Hospitalization, Other)
  Sender: FDA-Public Use
  Company Number: TW-ACTELION-A-CH2015-112847

PATIENT
  Age: 41 Year
  Sex: Female

DRUGS (3)
  1. OPSUMIT [Suspect]
     Active Substance: MACITENTAN
     Indication: PULMONARY ARTERIAL HYPERTENSION
     Dosage: 10 MG, QD
     Route: 048
     Dates: start: 201512, end: 20161003
  2. TRACLEER [Suspect]
     Active Substance: BOSENTAN
     Indication: PULMONARY ARTERIAL HYPERTENSION
     Dosage: 125 MG, BID
     Route: 048
     Dates: start: 2006, end: 201512
  3. REVATIO [Concomitant]
     Active Substance: SILDENAFIL CITRATE
     Dosage: UNK, TID
     Route: 048
     Dates: start: 20160823

REACTIONS (4)
  - Sudden death [Fatal]
  - Breast cancer stage IV [Fatal]
  - Concomitant disease progression [Not Recovered/Not Resolved]
  - Asthenia [Fatal]

NARRATIVE: CASE EVENT DATE: 20150202
